FAERS Safety Report 13930894 (Version 1)
Quarter: 2017Q3

REPORT INFORMATION
  Report Type: Spontaneous
  Country: US (occurrence: US)
  Receive Date: 20170902
  Receipt Date: 20170902
  Transmission Date: 20171127
  Serious: Yes (Life-Threatening, Hospitalization, Other)
  Sender: FDA-Public Use
  Company Number: US-BAUSCH-BL-2017-025710

PATIENT
  Age: 54 Year
  Sex: Male

DRUGS (1)
  1. SALINE [Suspect]
     Active Substance: SODIUM CHLORIDE
     Indication: BRONCHIAL HAEMORRHAGE
     Dosage: 60 CC OF COLD SALINE
     Route: 065

REACTIONS (1)
  - Atrioventricular block complete [Recovered/Resolved]
